FAERS Safety Report 17151600 (Version 1)
Quarter: 2019Q4

REPORT INFORMATION
  Report Type: Spontaneous
  Country: DK (occurrence: DK)
  Receive Date: 20191213
  Receipt Date: 20191213
  Transmission Date: 20200122
  Serious: Yes (Hospitalization, Other)
  Sender: FDA-Public Use
  Company Number: DK-PFIZER INC-2019537617

PATIENT
  Age: 16 Year
  Sex: Female

DRUGS (2)
  1. ADVAGRAF [Concomitant]
     Active Substance: TACROLIMUS
     Dosage: 1 MG, UNK
     Dates: start: 20181115
  2. ZESSLY [Suspect]
     Active Substance: INFLIXIMAB
     Indication: COLITIS ULCERATIVE
     Dosage: 300 MG (8/WEEK)
     Route: 042
     Dates: start: 20190222, end: 20190926

REACTIONS (3)
  - Malaise [Unknown]
  - Headache [Unknown]
  - Meningitis aseptic [Recovered/Resolved]

NARRATIVE: CASE EVENT DATE: 20190927
